FAERS Safety Report 19092103 (Version 1)
Quarter: 2021Q2

REPORT INFORMATION
  Report Type: Spontaneous
  Country: US (occurrence: US)
  Receive Date: 20210403
  Receipt Date: 20210403
  Transmission Date: 20210717
  Serious: No
  Sender: FDA-Public Use
  Company Number: None

PATIENT
  Age: 69 Year
  Sex: Male
  Weight: 60.3 kg

DRUGS (9)
  1. GENERIC FLOUNASE [Concomitant]
  2. VITAMIN C [Concomitant]
     Active Substance: ASCORBIC ACID
  3. GNERIC ZYRTEC [Concomitant]
  4. LISINIPRIL [Suspect]
     Active Substance: LISINOPRIL
     Indication: HYPERTENSION
     Dosage: QUANTITY:1 TABLET(S);?
     Route: 048
     Dates: start: 20210222
  5. MULTIL VITAMIN [Concomitant]
  6. VITAMIN E [Concomitant]
     Active Substance: .ALPHA.-TOCOPHEROL
  7. COQU10 [Concomitant]
  8. CALCIUM?VITAMIN D [Concomitant]
     Active Substance: CALCIUM\VITAMIN D
  9. LIPITOR [Concomitant]
     Active Substance: ATORVASTATIN CALCIUM

REACTIONS (5)
  - Cough [None]
  - Chest pain [None]
  - Back pain [None]
  - Urinary incontinence [None]
  - Middle insomnia [None]

NARRATIVE: CASE EVENT DATE: 20210329
